FAERS Safety Report 11187470 (Version 2)
Quarter: 2015Q4

REPORT INFORMATION
  Report Type: Spontaneous
  Country: US (occurrence: US)
  Receive Date: 20150615
  Receipt Date: 20151008
  Transmission Date: 20160304
  Serious: Yes (Hospitalization)
  Sender: FDA-Public Use
  Company Number: US-JNJFOC-20150424084

PATIENT
  Age: 52 Year
  Sex: Male

DRUGS (12)
  1. PROVENTIL [Concomitant]
     Active Substance: ALBUTEROL
     Route: 065
  2. MOMETASONE [Concomitant]
     Active Substance: MOMETASONE
     Route: 065
  3. NEBIVOLOL. [Concomitant]
     Active Substance: NEBIVOLOL
     Route: 065
  4. OMEPRAZOLE. [Concomitant]
     Active Substance: OMEPRAZOLE
     Route: 065
     Dates: start: 20130114
  5. LOSARTAN. [Concomitant]
     Active Substance: LOSARTAN
     Route: 065
  6. ALBUTEROL. [Concomitant]
     Active Substance: ALBUTEROL
     Route: 065
     Dates: start: 20120824
  7. CIALIS [Concomitant]
     Active Substance: TADALAFIL
     Route: 065
     Dates: start: 20121004
  8. TRAMADOL. [Concomitant]
     Active Substance: TRAMADOL
     Route: 065
  9. ATORVASTATIN [Concomitant]
     Active Substance: ATORVASTATIN
     Route: 065
     Dates: start: 20120824
  10. XARELTO [Suspect]
     Active Substance: RIVAROXABAN
     Indication: PULMONARY EMBOLISM
     Route: 048
     Dates: start: 20130412, end: 20130424
  11. COUMADIN [Suspect]
     Active Substance: WARFARIN SODIUM
     Indication: PULMONARY EMBOLISM
     Route: 065
  12. NASONEX [Concomitant]
     Active Substance: MOMETASONE FUROATE
     Route: 067
     Dates: start: 20121204

REACTIONS (1)
  - Haemothorax [Recovering/Resolving]

NARRATIVE: CASE EVENT DATE: 20130424
